FAERS Safety Report 19551235 (Version 1)
Quarter: 2021Q3

REPORT INFORMATION
  Report Type: Spontaneous
  Country: US (occurrence: US)
  Receive Date: 20210715
  Receipt Date: 20210715
  Transmission Date: 20211014
  Serious: Yes (Hospitalization)
  Sender: FDA-Public Use
  Company Number: None

PATIENT
  Age: 84 Year
  Sex: Male

DRUGS (7)
  1. VITAMIN D [Concomitant]
     Active Substance: VITAMIN D NOS
     Dates: start: 20210125
  2. ASPIRIN. [Concomitant]
     Active Substance: ASPIRIN
     Dates: start: 20210125
  3. ALLOPURINOL. [Concomitant]
     Active Substance: ALLOPURINOL
     Dates: start: 20210125
  4. OMEPRAZOLE. [Concomitant]
     Active Substance: OMEPRAZOLE
     Dates: start: 20210125
  5. PRAVASTATIN. [Concomitant]
     Active Substance: PRAVASTATIN
     Dates: start: 20210125
  6. CALCIUM [Concomitant]
     Active Substance: CALCIUM
     Dates: start: 20210125
  7. ABIRATERONE ACETATE TAB [Suspect]
     Active Substance: ABIRATERONE ACETATE
     Indication: PROSTATE CANCER
     Route: 048
     Dates: start: 20210125

REACTIONS (2)
  - Therapy interrupted [None]
  - Cerebrovascular accident [None]

NARRATIVE: CASE EVENT DATE: 20210701
